FAERS Safety Report 8565195 (Version 2)
Quarter: 2013Q1

REPORT INFORMATION
  Report Type: Spontaneous
  Country: US (occurrence: US)
  Receive Date: 20120516
  Receipt Date: 20130227
  Transmission Date: 20140127
  Serious: Yes (Hospitalization)
  Sender: FDA-Public Use
  Company Number: US-BAYER-2012-047447

PATIENT
  Age: 31 Year
  Sex: Female
  Weight: 58.96 kg

DRUGS (11)
  1. YAZ [Suspect]
     Indication: CONTRACEPTION
     Dosage: UNK
     Dates: start: 2007, end: 2010
  2. YAZ [Suspect]
     Indication: ACNE
  3. YAZ [Suspect]
     Indication: MOOD SWINGS
  4. YAZ [Suspect]
     Indication: PREMENSTRUAL SYNDROME
  5. YASMIN [Suspect]
     Indication: CONTRACEPTION
     Dosage: UNK
     Dates: start: 2007, end: 2010
  6. YASMIN [Suspect]
     Indication: ACNE
  7. YASMIN [Suspect]
     Indication: MOOD SWINGS
  8. YASMIN [Suspect]
     Indication: PREMENSTRUAL SYNDROME
  9. YASMIN [Suspect]
     Indication: PREMENSTRUAL DYSPHORIC DISORDER
  10. LEVAQUIN [Concomitant]
  11. PERCOCET [Concomitant]

REACTIONS (9)
  - Pulmonary embolism [None]
  - Pulmonary infarction [None]
  - Myocardial infarction [None]
  - Injury [None]
  - Pain [None]
  - Malaise [None]
  - Chills [None]
  - Mental disorder [None]
  - Back pain [None]
